FAERS Safety Report 17150011 (Version 4)
Quarter: 2020Q2

REPORT INFORMATION
  Report Type: Report from Study
  Country: US (occurrence: US)
  Receive Date: 20191213
  Receipt Date: 20200630
  Transmission Date: 20200713
  Serious: Yes (Hospitalization, Other)
  Sender: FDA-Public Use
  Company Number: US-ROCHE-2152578

PATIENT
  Age: 47 Year
  Sex: Female
  Weight: 75.8 kg

DRUGS (57)
  1. ATEZOLIZUMAB. [Suspect]
     Active Substance: ATEZOLIZUMAB
     Route: 042
     Dates: start: 20171211
  2. ATEZOLIZUMAB. [Suspect]
     Active Substance: ATEZOLIZUMAB
     Route: 042
     Dates: start: 20171211
  3. ATEZOLIZUMAB. [Suspect]
     Active Substance: ATEZOLIZUMAB
     Route: 042
     Dates: start: 20171211
  4. ATEZOLIZUMAB. [Suspect]
     Active Substance: ATEZOLIZUMAB
     Route: 042
     Dates: start: 20171211
  5. ATEZOLIZUMAB. [Suspect]
     Active Substance: ATEZOLIZUMAB
     Route: 042
     Dates: start: 20171211
  6. AMBIEN [Concomitant]
     Active Substance: ZOLPIDEM TARTRATE
  7. ATENOLOL. [Concomitant]
     Active Substance: ATENOLOL
  8. ATEZOLIZUMAB. [Suspect]
     Active Substance: ATEZOLIZUMAB
     Route: 042
     Dates: start: 20180124
  9. LYRICA [Concomitant]
     Active Substance: PREGABALIN
  10. OXYGEN. [Concomitant]
     Active Substance: OXYGEN
  11. ALPRAZOLAM. [Concomitant]
     Active Substance: ALPRAZOLAM
  12. CYCLOBENZAPRINE. [Concomitant]
     Active Substance: CYCLOBENZAPRINE
  13. RANITIDINE. [Concomitant]
     Active Substance: RANITIDINE
  14. TORSEMIDE. [Concomitant]
     Active Substance: TORSEMIDE
  15. ATEZOLIZUMAB. [Suspect]
     Active Substance: ATEZOLIZUMAB
     Route: 042
     Dates: start: 20180103
  16. OXYCODONE [Concomitant]
     Active Substance: OXYCODONE
  17. BUDESONIDE;FORMOTEROL [Concomitant]
     Active Substance: BUDESONIDE\FORMOTEROL
  18. FLUTICASONE. [Concomitant]
     Active Substance: FLUTICASONE
  19. IPRATROPIUM [Concomitant]
     Active Substance: IPRATROPIUM
  20. OLOPATADINE. [Concomitant]
     Active Substance: OLOPATADINE
  21. PREGABALIN. [Concomitant]
     Active Substance: PREGABALIN
  22. TRAZODONE [Concomitant]
     Active Substance: TRAZODONE HYDROCHLORIDE
  23. ATEZOLIZUMAB. [Suspect]
     Active Substance: ATEZOLIZUMAB
     Route: 042
     Dates: start: 20180209
  24. ATEZOLIZUMAB. [Suspect]
     Active Substance: ATEZOLIZUMAB
     Route: 042
     Dates: start: 20171211
  25. ADVIL [IBUPROFEN] [Concomitant]
     Active Substance: IBUPROFEN
  26. LUBIPROSTONE [Concomitant]
     Active Substance: LUBIPROSTONE
  27. BETAMETHASONE. [Concomitant]
     Active Substance: BETAMETHASONE
  28. ESZOPICLONE. [Concomitant]
     Active Substance: ESZOPICLONE
  29. GEMFIBROZIL. [Concomitant]
     Active Substance: GEMFIBROZIL
  30. HEPARIN [Concomitant]
     Active Substance: HEPARIN SODIUM
  31. SUNITINIB [Concomitant]
     Active Substance: SUNITINIB
  32. DULOXETINE. [Concomitant]
     Active Substance: DULOXETINE
  33. HYDROCORTISONE. [Concomitant]
     Active Substance: HYDROCORTISONE
  34. ATEZOLIZUMAB. [Suspect]
     Active Substance: ATEZOLIZUMAB
     Route: 042
     Dates: start: 20171211
  35. AMITIZA [Concomitant]
     Active Substance: LUBIPROSTONE
  36. AZELASTINE. [Concomitant]
     Active Substance: AZELASTINE HYDROCHLORIDE
  37. CHOLECALCIFEROL [Concomitant]
     Active Substance: CHOLECALCIFEROL
  38. DOXEPIN [Concomitant]
     Active Substance: DOXEPIN
  39. LORAZEPAM. [Concomitant]
     Active Substance: LORAZEPAM
  40. MOMETASONE [Concomitant]
     Active Substance: MOMETASONE
  41. ATEZOLIZUMAB. [Suspect]
     Active Substance: ATEZOLIZUMAB
     Indication: ALVEOLAR SOFT PART SARCOMA
     Dosage: PATIENTS RECEIVE ATEZOLIZUMAB IV OVER 60 MINUTES ON DAY 1. COURSES REPEAT EVERY 21 DAYS IN THE ABSEN
     Route: 042
     Dates: start: 20171211
  42. ATEZOLIZUMAB. [Suspect]
     Active Substance: ATEZOLIZUMAB
     Route: 042
     Dates: start: 20180305
  43. CYMBALTA [Concomitant]
     Active Substance: DULOXETINE HYDROCHLORIDE
  44. GLUCOSAMINE [Concomitant]
     Active Substance: GLUCOSAMINE
  45. PROAIR HFA [Concomitant]
     Active Substance: ALBUTEROL SULFATE
  46. FEXOFENADINE [Concomitant]
     Active Substance: FEXOFENADINE HYDROCHLORIDE
  47. FORMOTEROL [Concomitant]
     Active Substance: FORMOTEROL
  48. METOPROLOL. [Concomitant]
     Active Substance: METOPROLOL
  49. SENNOSIDE [SENNOSIDE A+B] [Concomitant]
     Active Substance: SENNOSIDES A AND B
  50. ATEZOLIZUMAB. [Suspect]
     Active Substance: ATEZOLIZUMAB
     Route: 042
     Dates: start: 20180103
  51. ATEZOLIZUMAB. [Suspect]
     Active Substance: ATEZOLIZUMAB
     Route: 042
     Dates: start: 20171211
  52. OXYBUTYNIN. [Concomitant]
     Active Substance: OXYBUTYNIN CHLORIDE
  53. ACETAMINOPHEN. [Concomitant]
     Active Substance: ACETAMINOPHEN
  54. ALBUTEROL [SALBUTAMOL] [Concomitant]
     Active Substance: ALBUTEROL
  55. LIDOCAINE. [Concomitant]
     Active Substance: LIDOCAINE
  56. MONTELUKAST [Concomitant]
     Active Substance: MONTELUKAST SODIUM
  57. PILOCARPINE. [Concomitant]
     Active Substance: PILOCARPINE

REACTIONS (12)
  - Urinary tract infection [Unknown]
  - Anxiety [Unknown]
  - Cerebrovascular accident [Recovered/Resolved]
  - Infection [Unknown]
  - Anaemia [Unknown]
  - Activated partial thromboplastin time prolonged [Unknown]
  - Hypoxia [Unknown]
  - Hypertension [Unknown]
  - Pneumonitis [Unknown]
  - Pneumonia [Unknown]
  - Mental disorder [Unknown]
  - Cerebrovascular accident [Recovered/Resolved]

NARRATIVE: CASE EVENT DATE: 20190215
